FAERS Safety Report 18398544 (Version 1)
Quarter: 2020Q4

REPORT INFORMATION
  Report Type: Spontaneous
  Country: GB (occurrence: GB)
  Receive Date: 20201019
  Receipt Date: 20201019
  Transmission Date: 20210114
  Serious: Yes (Other)
  Sender: FDA-Public Use
  Company Number: GB-IPSEN BIOPHARMACEUTICALS, INC.-2020-19684

PATIENT
  Age: 42 Year
  Sex: Female
  Weight: 52.16 kg

DRUGS (1)
  1. AZZALURE [Suspect]
     Active Substance: BOTULINUM TOXIN TYPE A
     Indication: SKIN WRINKLING
     Dosage: 45 UNITS
     Route: 051
     Dates: start: 20170331, end: 20170331

REACTIONS (22)
  - Dry eye [Not Recovered/Not Resolved]
  - Diarrhoea [Not Recovered/Not Resolved]
  - Insomnia [Recovering/Resolving]
  - Dyspnoea [Recovered/Resolved]
  - Anxiety [Not Recovered/Not Resolved]
  - Facial discomfort [Unknown]
  - Headache [Unknown]
  - Paraesthesia [Unknown]
  - Skin tightness [Unknown]
  - Injection site bruising [Recovered/Resolved]
  - Hypotonia [Not Recovered/Not Resolved]
  - Nausea [Recovering/Resolving]
  - Dizziness [Unknown]
  - Brow ptosis [Recovering/Resolving]
  - Ocular discomfort [Unknown]
  - Optic nerve injury [Unknown]
  - Feeling abnormal [Recovering/Resolving]
  - Medication error [Unknown]
  - Facial paralysis [Not Recovered/Not Resolved]
  - Malaise [Unknown]
  - Hypoaesthesia [Recovering/Resolving]
  - Off label use [Unknown]

NARRATIVE: CASE EVENT DATE: 20170422
